FAERS Safety Report 8262318-4 (Version None)
Quarter: 2012Q2

REPORT INFORMATION
  Report Type: 
  Country: None (occurrence: None)
  Receive Date: 20120405
  Receipt Date: 20120322
  Transmission Date: 20120825
  Serious: Yes (Death, Hospitalization)
  Sender: FDA-Public Use
  Company Number: US-ROCHE-772815

PATIENT
  Sex: Male
  Weight: 124.5 kg

DRUGS (14)
  1. CALCIUM CARBONATE [Concomitant]
  2. PRILOSEC [Concomitant]
  3. ACTEMRA [Suspect]
     Indication: RHEUMATOID ARTHRITIS
     Dosage: LAST DOSE PRIOR TO SAE: 16 FEB 2011
     Route: 042
  4. LYRICA [Concomitant]
  5. METOPROLOL SUCCINATE [Concomitant]
  6. NORCO [Concomitant]
  7. FUROSEMIDE [Concomitant]
  8. MULTI-VITAMIN [Concomitant]
  9. FOLIC ACID [Concomitant]
  10. METHOTREXATE [Concomitant]
     Dates: start: 20100514, end: 20120227
  11. ASPIRIN [Concomitant]
  12. METOPROLOL SUCCINATE [Concomitant]
  13. LISINOPRIL [Concomitant]
  14. SIMVASTATIN [Concomitant]

REACTIONS (2)
  - ACUTE RESPIRATORY FAILURE [None]
  - ATRIAL FIBRILLATION [None]
